FAERS Safety Report 13616519 (Version 1)
Quarter: 2017Q2

REPORT INFORMATION
  Report Type: Spontaneous
  Country: US (occurrence: US)
  Receive Date: 20170606
  Receipt Date: 20170606
  Transmission Date: 20170830
  Serious: Yes (Hospitalization)
  Sender: FDA-Public Use
  Company Number: None

PATIENT
  Age: 31 Year
  Sex: Male

DRUGS (8)
  1. ACYCLOVIR. [Concomitant]
     Active Substance: ACYCLOVIR
  2. BACTRIM DS [Concomitant]
     Active Substance: SULFAMETHOXAZOLE\TRIMETHOPRIM
  3. ETOPOSIDE. [Suspect]
     Active Substance: ETOPOSIDE
     Indication: ACUTE LYMPHOCYTIC LEUKAEMIA
     Dosage: 50 MG AS NEEDED ORAL
     Route: 048
  4. LYTICA [Concomitant]
  5. FYCOMPA [Concomitant]
     Active Substance: PERAMPANEL
  6. LEVOCARNITINE. [Concomitant]
     Active Substance: LEVOCARNITINE
  7. ZONISAMIDE. [Concomitant]
     Active Substance: ZONISAMIDE
  8. DEPAKOTE ER [Concomitant]
     Active Substance: DIVALPROEX SODIUM

REACTIONS (1)
  - Hospitalisation [None]
